FAERS Safety Report 9251639 (Version 1)
Quarter: 2013Q2

REPORT INFORMATION
  Report Type: Spontaneous
  Country: US (occurrence: US)
  Receive Date: 20130424
  Receipt Date: 20130424
  Transmission Date: 20140414
  Serious: No
  Sender: FDA-Public Use
  Company Number: US-PFIZER INC-2013125296

PATIENT
  Age: 74 Year
  Sex: Female
  Weight: 68.03 kg

DRUGS (3)
  1. VFEND [Suspect]
     Indication: FUNGAL INFECTION
     Dosage: 200 MG, 2X/DAY
     Route: 048
  2. SINGULAIR [Concomitant]
     Dosage: UNK
  3. ADVAIR [Concomitant]
     Dosage: UNK

REACTIONS (2)
  - Bowel movement irregularity [Not Recovered/Not Resolved]
  - Flatulence [Not Recovered/Not Resolved]
